FAERS Safety Report 24560891 (Version 5)
Quarter: 2024Q4

REPORT INFORMATION
  Report Type: Spontaneous
  Country: US (occurrence: US)
  Receive Date: 20241029
  Receipt Date: 20241223
  Transmission Date: 20250114
  Serious: No
  Sender: PFIZER
  Company Number: US-PFIZER INC-202400285870

PATIENT
  Age: 12 Year
  Sex: Male

DRUGS (1)
  1. GENOTROPIN [Suspect]
     Active Substance: SOMATROPIN
     Dosage: 1.4 MG

REACTIONS (7)
  - Device mechanical issue [Unknown]
  - Poor quality device used [Unknown]
  - Device physical property issue [Unknown]
  - Device breakage [Unknown]
  - Device deposit issue [Unknown]
  - Device delivery system issue [Unknown]
  - Device occlusion [Unknown]
